FAERS Safety Report 24757157 (Version 2)
Quarter: 2025Q1

REPORT INFORMATION
  Report Type: Spontaneous
  Country: JP (occurrence: JP)
  Receive Date: 20241220
  Receipt Date: 20250106
  Transmission Date: 20250408
  Serious: Yes (Hospitalization, Other)
  Sender: BRISTOL-MYERS SQUIBB COMPANY
  Company Number: JP-BRISTOL-MYERS SQUIBB COMPANY-2024-196463

PATIENT
  Age: 77 Year
  Sex: Male

DRUGS (64)
  1. LENALIDOMIDE [Suspect]
     Active Substance: LENALIDOMIDE
     Indication: Plasma cell myeloma
     Route: 048
     Dates: start: 20190909, end: 20241217
  2. DARATUMUMAB [Suspect]
     Active Substance: DARATUMUMAB
     Indication: Plasma cell myeloma
     Route: 058
  3. DEXAMETHASONE [Concomitant]
     Active Substance: DEXAMETHASONE
     Indication: Plasma cell myeloma
     Route: 048
     Dates: start: 20190909, end: 20230125
  4. BEZAFIBRATE [Concomitant]
     Active Substance: BEZAFIBRATE
     Indication: Hyperlipidaemia
     Route: 048
     Dates: end: 20190914
  5. BEZAFIBRATE [Concomitant]
     Active Substance: BEZAFIBRATE
     Route: 048
     Dates: end: 20190914
  6. ICOSAPENT ETHYL [Concomitant]
     Active Substance: ICOSAPENT ETHYL
     Indication: Hyperlipidaemia
     Route: 048
     Dates: end: 20190914
  7. ICOSAPENT ETHYL [Concomitant]
     Active Substance: ICOSAPENT ETHYL
     Route: 048
     Dates: start: 20190915
  8. TELMISARTAN [Concomitant]
     Active Substance: TELMISARTAN
     Indication: Hypertension
     Route: 048
     Dates: end: 20191223
  9. AMLODIPINE BESYLATE [Concomitant]
     Active Substance: AMLODIPINE BESYLATE
     Indication: Hypertension
     Route: 048
     Dates: end: 20191223
  10. AMLODIPINE BESYLATE [Concomitant]
     Active Substance: AMLODIPINE BESYLATE
     Route: 048
     Dates: start: 20200804, end: 20211220
  11. AMLODIPINE BESYLATE [Concomitant]
     Active Substance: AMLODIPINE BESYLATE
     Route: 048
     Dates: start: 20211221, end: 20221007
  12. AMLODIPINE BESYLATE [Concomitant]
     Active Substance: AMLODIPINE BESYLATE
     Route: 048
     Dates: start: 20221008
  13. VONOPRAZAN FUMARATE [Concomitant]
     Active Substance: VONOPRAZAN FUMARATE
     Indication: Gastritis
     Route: 048
     Dates: end: 20190909
  14. KETOPROFEN [Concomitant]
     Active Substance: KETOPROFEN
     Indication: Back pain
     Route: 061
     Dates: end: 20230910
  15. MAGNESIUM OXIDE [Concomitant]
     Active Substance: MAGNESIUM OXIDE
     Indication: Constipation
     Route: 048
     Dates: start: 20190911, end: 20191118
  16. BETAMETHASONE VALERATE [Concomitant]
     Active Substance: BETAMETHASONE VALERATE
     Indication: Haemorrhoids
     Route: 061
     Dates: start: 20190911, end: 20230910
  17. HEPARINOID [Concomitant]
     Indication: Haemorrhoids
     Route: 061
     Dates: start: 20190911, end: 20230910
  18. HEMOPORISON [Concomitant]
     Indication: Haemorrhoids
     Route: 061
     Dates: start: 20190911, end: 20230910
  19. ALENDRONATE SODIUM [Concomitant]
     Active Substance: ALENDRONATE SODIUM
     Indication: Plasma cell myeloma
     Route: 048
     Dates: start: 20190913, end: 20220814
  20. ALENDRONATE SODIUM [Concomitant]
     Active Substance: ALENDRONATE SODIUM
     Route: 048
     Dates: start: 20230106
  21. FENOFIBRATE [Concomitant]
     Active Substance: FENOFIBRATE
     Indication: Hyperlipidaemia
     Route: 048
     Dates: start: 20190915
  22. ASPIRIN [Concomitant]
     Active Substance: ASPIRIN
     Indication: Thrombosis prophylaxis
     Route: 048
     Dates: start: 20190909
  23. ACYCLOVIR SODIUM [Concomitant]
     Active Substance: ACYCLOVIR SODIUM
     Indication: Infection prophylaxis
     Route: 048
     Dates: start: 20190909, end: 20210801
  24. ACYCLOVIR SODIUM [Concomitant]
     Active Substance: ACYCLOVIR SODIUM
     Route: 048
     Dates: start: 20221107
  25. ESOMEPRAZOLE MAGNESIUM [Concomitant]
     Active Substance: ESOMEPRAZOLE MAGNESIUM
     Indication: Gastritis prophylaxis
     Route: 048
     Dates: start: 20190909
  26. LEVOFLOXACIN HEMIHYDRATE [Concomitant]
     Active Substance: LEVOFLOXACIN
     Indication: Sinusitis
     Route: 048
     Dates: start: 20190930, end: 20191011
  27. MIYA-BM [Concomitant]
     Active Substance: CLOSTRIDIUM BUTYRICUM SPORES STRAIN M-55
     Indication: Diarrhoea
     Route: 048
     Dates: start: 20191122, end: 20191205
  28. LOPERAMIDE HYDROCHLORIDE [Concomitant]
     Active Substance: LOPERAMIDE HYDROCHLORIDE
     Indication: Diarrhoea
     Route: 048
     Dates: start: 20191122, end: 20191130
  29. POTASSIUM CHLORIDE [Concomitant]
     Active Substance: POTASSIUM CHLORIDE
     Indication: Hypokalaemia
     Route: 048
     Dates: start: 20191223, end: 20200105
  30. POTASSIUM CHLORIDE [Concomitant]
     Active Substance: POTASSIUM CHLORIDE
     Route: 048
     Dates: start: 20200106
  31. ENEVO [Concomitant]
     Indication: Decreased appetite
     Route: 048
     Dates: start: 20200127, end: 20200216
  32. ENEVO [Concomitant]
     Route: 048
     Dates: start: 20200120
  33. MIROGABALIN BESYLATE [Concomitant]
     Active Substance: MIROGABALIN BESYLATE
     Indication: Peripheral sensory neuropathy
     Route: 048
     Dates: start: 20200707, end: 20200803
  34. MIROGABALIN BESYLATE [Concomitant]
     Active Substance: MIROGABALIN BESYLATE
     Route: 048
     Dates: start: 20200804
  35. MIROGABALIN BESYLATE [Concomitant]
     Active Substance: MIROGABALIN BESYLATE
     Route: 048
     Dates: start: 20200511, end: 20200706
  36. GARENOXACIN MESYLATE [Concomitant]
     Active Substance: GARENOXACIN MESYLATE
     Indication: Dermal cyst
     Route: 048
     Dates: start: 20210510, end: 20210622
  37. GARENOXACIN MESYLATE [Concomitant]
     Active Substance: GARENOXACIN MESYLATE
     Indication: Nasopharyngitis
     Route: 048
     Dates: start: 20210315, end: 20210323
  38. GARENOXACIN MESYLATE [Concomitant]
     Active Substance: GARENOXACIN MESYLATE
     Dosage: AS NECESSARY
     Route: 048
     Dates: start: 20210830, end: 20210927
  39. GARENOXACIN MESYLATE [Concomitant]
     Active Substance: GARENOXACIN MESYLATE
     Dosage: AS NECESSARY
     Route: 048
     Dates: start: 20231226, end: 20240101
  40. ADSORBED TETANUS TOXOID [Concomitant]
     Indication: Tetanus
     Dates: start: 20210607, end: 20210607
  41. ZOVIRAX [Concomitant]
     Active Substance: ACYCLOVIR
     Indication: Viral infection
     Route: 048
     Dates: start: 20210802, end: 20221106
  42. INFLUENZA VIRUS VACCINE [Concomitant]
     Active Substance: INFLUENZA VIRUS VACCINE
     Indication: Prophylaxis
     Dates: start: 20211122, end: 20211122
  43. INFLUENZA VIRUS VACCINE [Concomitant]
     Active Substance: INFLUENZA VIRUS VACCINE
     Route: 058
     Dates: start: 20221205, end: 20221205
  44. INFLUENZA VIRUS VACCINE [Concomitant]
     Active Substance: INFLUENZA VIRUS VACCINE
     Route: 058
     Dates: start: 20231030, end: 20231030
  45. VITAMEDIN [BENFOTIAMINE;CYANOCOBALAMIN;PYRIDOXINE HYDROCHLORIDE] [Concomitant]
     Indication: Vitamin B1 deficiency
     Route: 048
     Dates: start: 20220425
  46. VITAMEDIN [BENFOTIAMINE;CYANOCOBALAMIN;PYRIDOXINE HYDROCHLORIDE] [Concomitant]
     Indication: Rhinovirus infection
     Route: 042
     Dates: start: 20240611, end: 20240611
  47. COMIRNATY [Concomitant]
     Indication: COVID-19 prophylaxis
     Route: 030
     Dates: start: 20210615, end: 20210615
  48. COMIRNATY [Concomitant]
     Route: 030
     Dates: start: 20220701, end: 20220701
  49. COMIRNATY [Concomitant]
     Route: 030
     Dates: start: 20210624, end: 20210624
  50. LINAGLIPTIN [Concomitant]
     Active Substance: LINAGLIPTIN
     Indication: Diabetes mellitus
     Route: 048
     Dates: start: 20220912, end: 20230103
  51. LINAGLIPTIN [Concomitant]
     Active Substance: LINAGLIPTIN
     Route: 048
     Dates: start: 20230104, end: 20230130
  52. METFORMIN HYDROCHLORIDE [Concomitant]
     Active Substance: METFORMIN HYDROCHLORIDE
     Indication: Diabetes mellitus
     Route: 048
     Dates: start: 20230104
  53. OZEMPIC [Concomitant]
     Active Substance: SEMAGLUTIDE
     Indication: Diabetes mellitus
     Route: 058
     Dates: start: 20230327, end: 20230521
  54. OZEMPIC [Concomitant]
     Active Substance: SEMAGLUTIDE
     Route: 058
     Dates: start: 20230522
  55. OZEMPIC [Concomitant]
     Active Substance: SEMAGLUTIDE
     Route: 058
     Dates: start: 20230203, end: 20230326
  56. FILGRASTIM [Concomitant]
     Active Substance: FILGRASTIM
     Indication: Leukopenia
     Route: 058
     Dates: start: 20230914, end: 20230915
  57. FILGRASTIM [Concomitant]
     Active Substance: FILGRASTIM
     Indication: Neutropenia
     Route: 058
     Dates: start: 20240318, end: 20240318
  58. CARBOCYSTEINE [Concomitant]
     Active Substance: CARBOCYSTEINE
     Indication: Nasopharyngitis
     Route: 048
     Dates: start: 20231226, end: 20240101
  59. DEXTROMETHORPHAN HYDROBROMIDE [Concomitant]
     Active Substance: DEXTROMETHORPHAN HYDROBROMIDE
     Indication: Nasopharyngitis
     Route: 048
     Dates: start: 20231226, end: 20240101
  60. AMOXICILLIN [Concomitant]
     Active Substance: AMOXICILLIN
     Indication: Infection prophylaxis
     Route: 048
     Dates: start: 20240221, end: 20240223
  61. SOLDEM 3A [Concomitant]
     Active Substance: CARBOHYDRATES\POTASSIUM CHLORIDE\SODIUM CHLORIDE\SODIUM LACTATE
     Indication: Rhinovirus infection
     Route: 042
     Dates: start: 20240611, end: 20240614
  62. HUMULIN R [Concomitant]
     Active Substance: INSULIN HUMAN
     Indication: Diabetes mellitus
     Route: 058
     Dates: start: 20240611, end: 20240618
  63. SOLITA-T1 [Concomitant]
     Indication: Dehydration
     Route: 042
     Dates: start: 20240626, end: 20240626
  64. BORTEZOMIB [Concomitant]
     Active Substance: BORTEZOMIB
     Indication: Plasma cell myeloma
     Route: 058
     Dates: start: 20190909, end: 20200925

REACTIONS (2)
  - Radius fracture [Recovered/Resolved]
  - Fall [Unknown]

NARRATIVE: CASE EVENT DATE: 20241216
